FAERS Safety Report 10830243 (Version 1)
Quarter: 2015Q1

REPORT INFORMATION
  Report Type: Report from Study
  Country: US (occurrence: US)
  Receive Date: 20150219
  Receipt Date: 20150219
  Transmission Date: 20150721
  Serious: No
  Sender: FDA-Public Use
  Company Number: US-ABBVIE-14P-163-1188321-00

PATIENT
  Age: 71 Year
  Sex: Female

DRUGS (2)
  1. ARMOUR THYROID [Concomitant]
     Active Substance: THYROID, PORCINE\THYROID, UNSPECIFIED
     Indication: HYPOTHYROIDISM
  2. HUMIRA [Suspect]
     Active Substance: ADALIMUMAB
     Indication: CROHN^S DISEASE
     Dates: start: 201010

REACTIONS (9)
  - Ocular hyperaemia [Not Recovered/Not Resolved]
  - Eye discharge [Recovering/Resolving]
  - Eye irritation [Recovering/Resolving]
  - Hordeolum [Recovered/Resolved]
  - Diarrhoea [Recovering/Resolving]
  - Dry eye [Recovering/Resolving]
  - Eye infection [Recovering/Resolving]
  - Conjunctivitis [Recovering/Resolving]
  - Stress [Unknown]

NARRATIVE: CASE EVENT DATE: 201310
